FAERS Safety Report 5564256-4 (Version None)
Quarter: 2007Q4

REPORT INFORMATION
  Report Type: 
  Country: None (occurrence: None)
  Receive Date: 20071212
  Receipt Date: 20071204
  Transmission Date: 20080405
  Serious: Yes (Other)
  Sender: FDA-Public Use
  Company Number: 6039297

PATIENT
  Age: 42 Year
  Sex: Male

DRUGS (2)
  1. MONOCOR (5 MG) (BISOPROLOL FUMARATE) [Suspect]
     Indication: DRUG USE FOR UNKNOWN INDICATION
     Dosage: 5 MG (5 MG, 1 IN 1 D) ORAL
     Route: 048
     Dates: start: 20071008, end: 20071015
  2. LISINOPRIL (5 MG) (LISINOPRIL) [Concomitant]

REACTIONS (1)
  - LIP SWELLING [None]
